FAERS Safety Report 7980235-1 (Version None)
Quarter: 2011Q4

REPORT INFORMATION
  Report Type: 
  Country: None (occurrence: None)
  Receive Date: 20111214
  Receipt Date: 20111206
  Transmission Date: 20120403
  Serious: Yes (Other)
  Sender: FDA-Public Use
  Company Number: NL-ABBOTT-11P-114-0881544-00

PATIENT
  Sex: Female
  Weight: 78 kg

DRUGS (2)
  1. TAMOXIFEN [Concomitant]
     Indication: BREAST CANCER FEMALE
     Route: 048
     Dates: start: 20110101
  2. LEUPROLIDE ACETATE [Suspect]
     Indication: BREAST CANCER FEMALE
     Route: 058
     Dates: start: 20110114

REACTIONS (10)
  - PAIN IN EXTREMITY [None]
  - MOBILITY DECREASED [None]
  - NECK PAIN [None]
  - HOT FLUSH [None]
  - DRY EYE [None]
  - TREMOR [None]
  - LYMPHOMATOID PAPULOSIS [None]
  - VISION BLURRED [None]
  - PAIN OF SKIN [None]
  - MUSCULOSKELETAL PAIN [None]
